FAERS Safety Report 5042240-7 (Version None)
Quarter: 2006Q2

REPORT INFORMATION
  Report Type: 
  Country: None (occurrence: None)
  Receive Date: 20060627
  Receipt Date: 20060613
  Transmission Date: 20061013
  Serious: Yes (Hospitalization)
  Sender: FDA-Public Use
  Company Number: 2006064046

PATIENT
  Age: 12 Year
  Sex: Female
  Weight: 41 kg

DRUGS (4)
  1. AZITHROMYCIN [Suspect]
     Indication: COUGH
     Dosage: 500 MG (500 MG, 1 IN 1 D), ORAL
     Route: 048
     Dates: start: 20060506, end: 20060508
  2. MEDICON 9DEXTROMETHORPHAN HYDROBROMIDE) (DEXTROMETHORPHAN HYDROROMIDE) [Suspect]
     Indication: COUGH
     Dosage: 45 MG (15 MG, 3 IN 1 D), ORAL
     Route: 048
     Dates: start: 20060506, end: 20060508
  3. CARBUTAN (CARBOCISTEINE) (CARBOCISTEINE) [Suspect]
     Indication: PRODUCTIVE COUGH
     Dosage: 750 MG (250 MG, 3 IN1 D), ORAL
     Route: 048
     Dates: start: 20060506, end: 20060508
  4. MUCOSOLVAN (AMBROXOL HYDROCHLORIDE) (AMBROXOL HYDROCHLORIDE) [Suspect]
     Indication: PRODUCTIVE COUGH
     Dosage: 45 MG (15 MG, 3 IN 1 D), ORAL
     Route: 048
     Dates: start: 20060506, end: 20060508

REACTIONS (3)
  - DYSPNOEA [None]
  - INSOMNIA [None]
  - URTICARIA GENERALISED [None]
